FAERS Safety Report 23751603 (Version 1)
Quarter: 2024Q2

REPORT INFORMATION
  Report Type: Spontaneous
  Country: US (occurrence: US)
  Receive Date: 20240417
  Receipt Date: 20240417
  Transmission Date: 20240716
  Serious: Yes (Other)
  Sender: FDA-Public Use
  Company Number: US-IPSEN Group, Research and Development-2024-06238

PATIENT
  Sex: Male

DRUGS (2)
  1. SOMATULINE DEPOT [Suspect]
     Active Substance: LANREOTIDE ACETATE
     Indication: Acromegaly
     Route: 058
  2. SOMAVERT [Concomitant]
     Active Substance: PEGVISOMANT

REACTIONS (1)
  - Nephrolithiasis [Unknown]
